FAERS Safety Report 20296590 (Version 1)
Quarter: 2022Q1

REPORT INFORMATION
  Report Type: Spontaneous
  Country: GB (occurrence: GB)
  Receive Date: 20220105
  Receipt Date: 20220105
  Transmission Date: 20220423
  Serious: No
  Sender: FDA-Public Use
  Company Number: GB-GLAXOSMITHKLINE-GBCH2021064439

PATIENT
  Age: 71 Year
  Sex: Female

DRUGS (3)
  1. IBUPROFEN [Suspect]
     Active Substance: IBUPROFEN
     Indication: Pain
     Dosage: UNK
     Route: 065
  2. ACETAMINOPHEN [Suspect]
     Active Substance: ACETAMINOPHEN
     Indication: Pain
     Dosage: UNK
     Route: 065
  3. CHLORHEXIDINE GLUCONATE [Suspect]
     Active Substance: CHLORHEXIDINE GLUCONATE
     Indication: Alveolar osteitis
     Dosage: UNK
     Route: 065
     Dates: start: 20210810

REACTIONS (6)
  - Tongue discolouration [Not Recovered/Not Resolved]
  - Hypoaesthesia oral [Not Recovered/Not Resolved]
  - Taste disorder [Not Recovered/Not Resolved]
  - Wrong technique in product usage process [Unknown]
  - Tongue coated [Not Recovered/Not Resolved]
  - Dental paraesthesia [Not Recovered/Not Resolved]

NARRATIVE: CASE EVENT DATE: 20210810
